FAERS Safety Report 9665396 (Version 2)
Quarter: 2013Q4

REPORT INFORMATION
  Report Type: Spontaneous
  Country: GB (occurrence: GB)
  Receive Date: 20131104
  Receipt Date: 20131113
  Transmission Date: 20140711
  Serious: Yes (Other)
  Sender: FDA-Public Use
  Company Number: GB-JNJFOC-20131014613

PATIENT
  Age: 66 Year
  Sex: Female
  Weight: 61.69 kg

DRUGS (2)
  1. PARACETAMOL [Suspect]
     Route: 048
  2. PARACETAMOL [Suspect]
     Indication: INFLUENZA
     Route: 048
     Dates: start: 20131004, end: 20131007

REACTIONS (1)
  - Rash [Recovering/Resolving]
